FAERS Safety Report 9416053 (Version 1)
Quarter: 2013Q3

REPORT INFORMATION
  Report Type: Spontaneous
  Country: US (occurrence: None)
  Receive Date: 20130723
  Receipt Date: 20130723
  Transmission Date: 20140515
  Serious: Yes (Death)
  Sender: FDA-Public Use
  Company Number: None

PATIENT
  Age: 74 Year
  Sex: Male
  Weight: 63.5 kg

DRUGS (1)
  1. NICOTINE PATCHES/ PATCH DONE BASED ON CIGARETTE [Suspect]
     Indication: OESOPHAGEAL CARCINOMA

REACTIONS (6)
  - Acute respiratory failure [None]
  - Atrial fibrillation [None]
  - Hypotension [None]
  - Cardiogenic shock [None]
  - Sepsis [None]
  - Renal failure acute [None]
